FAERS Safety Report 4396637-9 (Version None)
Quarter: 2004Q3

REPORT INFORMATION
  Report Type: 
  Country: None (occurrence: None)
  Receive Date: 20040714
  Receipt Date: 20040629
  Transmission Date: 20050211
  Serious: Yes (Other)
  Sender: FDA-Public Use
  Company Number: 200412248JP

PATIENT
  Sex: 0

DRUGS (3)
  1. TAXOTERE [Suspect]
     Indication: OESOPHAGEAL CARCINOMA
     Route: 041
  2. FLUOROURACIL [Suspect]
     Indication: OESOPHAGEAL CARCINOMA
     Route: 041
  3. RADIO THERAPY [Concomitant]
     Indication: OESOPHAGEAL CARCINOMA
     Dosage: DOSE: 2 GY

REACTIONS (1)
  - POST PROCEDURAL FISTULA [None]
